FAERS Safety Report 14985251 (Version 1)
Quarter: 2018Q2

REPORT INFORMATION
  Report Type: Spontaneous
  Country: GB (occurrence: GB)
  Receive Date: 20180607
  Receipt Date: 20180607
  Transmission Date: 20180711
  Serious: Yes (Death)
  Sender: FDA-Public Use
  Company Number: GB-NAPPMUNDI-GBR-2018-0056581

PATIENT
  Age: 36 Year
  Sex: Male

DRUGS (4)
  1. ZOPICLONE [Concomitant]
     Active Substance: ZOPICLONE
  2. ALCOHOL. [Concomitant]
     Active Substance: ALCOHOL
     Dosage: THERAPEUTIC LEVELS
  3. OXYCODONE HYDROCHLORIDE. [Suspect]
     Active Substance: OXYCODONE HYDROCHLORIDE
     Indication: PAIN
     Dosage: LETHAL LEVEL
     Route: 065
  4. TRAMADOL HYDROCHLORIDE. [Suspect]
     Active Substance: TRAMADOL HYDROCHLORIDE
     Indication: PAIN
     Dosage: TOXIC AMOUNT
     Route: 065

REACTIONS (4)
  - Epistaxis [Fatal]
  - Toxicity to various agents [Fatal]
  - Loss of consciousness [Fatal]
  - Overdose [Fatal]

NARRATIVE: CASE EVENT DATE: 201709
